FAERS Safety Report 12507310 (Version 2)
Quarter: 2016Q3

REPORT INFORMATION
  Report Type: Spontaneous
  Country: JP (occurrence: JP)
  Receive Date: 20160629
  Receipt Date: 20160810
  Transmission Date: 20161109
  Serious: Yes (Death, Hospitalization, Other)
  Sender: FDA-Public Use
  Company Number: JP-BRISTOL-MYERS SQUIBB COMPANY-BMS-2016-052321

PATIENT
  Age: 69 Year
  Sex: Male

DRUGS (3)
  1. OPDIVO [Suspect]
     Active Substance: NIVOLUMAB
     Indication: NON-SMALL CELL LUNG CANCER RECURRENT
     Dosage: 135 MG, Q2MO
     Route: 041
     Dates: start: 20160412, end: 20160412
  2. OPDIVO [Suspect]
     Active Substance: NIVOLUMAB
     Dosage: 135 MG, Q2MO
     Route: 041
     Dates: start: 2016, end: 2016
  3. OPDIVO [Suspect]
     Active Substance: NIVOLUMAB
     Dosage: 135 MG, Q2MO
     Route: 041
     Dates: start: 2016, end: 2016

REACTIONS (3)
  - Hypercalcaemia [Not Recovered/Not Resolved]
  - Malignant neoplasm progression [Fatal]
  - Blood creatine phosphokinase increased [Not Recovered/Not Resolved]
